FAERS Safety Report 8466494 (Version 3)
Quarter: 2014Q2

REPORT INFORMATION
  Report Type: Spontaneous
  Country: US (occurrence: US)
  Receive Date: 20120319
  Receipt Date: 20140613
  Transmission Date: 20141212
  Serious: No
  Sender: FDA-Public Use
  Company Number: US-ASTRAZENECA-2011SE78372

PATIENT
  Age: 23753 Day
  Sex: Male
  Weight: 86.2 kg

DRUGS (10)
  1. NEXIUM [Suspect]
     Indication: GASTROOESOPHAGEAL REFLUX DISEASE
     Route: 048
  2. NEXIUM [Suspect]
     Indication: OESOPHAGEAL ULCER
     Route: 048
  3. NEXIUM [Suspect]
     Indication: HIATUS HERNIA
     Route: 048
  4. NEXIUM [Suspect]
     Indication: GASTROOESOPHAGEAL REFLUX DISEASE
     Route: 048
     Dates: start: 2008, end: 20140522
  5. NEXIUM [Suspect]
     Indication: OESOPHAGEAL ULCER
     Route: 048
     Dates: start: 2008, end: 20140522
  6. NEXIUM [Suspect]
     Indication: HIATUS HERNIA
     Route: 048
     Dates: start: 2008, end: 20140522
  7. NEXIUM 24 HR [Suspect]
     Dosage: BID
     Route: 048
  8. OVER THE COUNTER MEDICINE [Suspect]
     Route: 065
  9. ENALAPRIL [Concomitant]
     Indication: HYPERTENSION
     Route: 048
     Dates: start: 2004
  10. VALIUM [Concomitant]
     Indication: MUSCLE SPASMS
     Dosage: PRN
     Route: 048
     Dates: start: 201312

REACTIONS (5)
  - Arthropathy [Unknown]
  - Gastrooesophageal reflux disease [Unknown]
  - Oesophageal ulcer [Unknown]
  - Sleep disorder due to a general medical condition [Unknown]
  - Intentional product misuse [Unknown]
